FAERS Safety Report 21928443 (Version 1)
Quarter: 2023Q1

REPORT INFORMATION
  Report Type: Spontaneous
  Country: TR (occurrence: TR)
  Receive Date: 20230130
  Receipt Date: 20230130
  Transmission Date: 20230417
  Serious: Yes (Hospitalization)
  Sender: FDA-Public Use
  Company Number: TR-STRIDES ARCOLAB LIMITED-2023SP001325

PATIENT
  Age: 14 Year
  Sex: Female
  Weight: 60 kg

DRUGS (1)
  1. VERAPAMIL [Suspect]
     Active Substance: VERAPAMIL HYDROCHLORIDE
     Indication: Product used for unknown indication
     Dosage: 120 MILLIGRAM (40 TABLETS; CONTAINS 120 MG VERAPAMIL HYDROCHLORIDE IN EACH TABLET)
     Route: 048

REACTIONS (10)
  - Ventricular extrasystoles [Recovered/Resolved]
  - Vasodilatation [Unknown]
  - Vomiting [Unknown]
  - Cardiogenic shock [Recovered/Resolved]
  - Bradycardia [Recovered/Resolved]
  - Hypotension [Recovered/Resolved]
  - Dizziness [Unknown]
  - Flushing [Unknown]
  - Lethargy [Unknown]
  - Toxicity to various agents [Unknown]
